FAERS Safety Report 6141992-2 (Version None)
Quarter: 2009Q2

REPORT INFORMATION
  Report Type: 
  Country: None (occurrence: None)
  Receive Date: 20090402
  Receipt Date: 20090325
  Transmission Date: 20091009
  Serious: Yes (Hospitalization, Disabling)
  Sender: FDA-Public Use
  Company Number: PHEH2009US03017

PATIENT
  Age: 79 Year
  Sex: Male

DRUGS (2)
  1. TASIGNA [Suspect]
     Indication: CHRONIC MYELOID LEUKAEMIA
     Dosage: 800 MG, QD (200 MG UNITS)
     Route: 048
     Dates: start: 20071212, end: 20090323
  2. DIURETICS [Concomitant]

REACTIONS (5)
  - ACUTE RESPIRATORY DISTRESS SYNDROME [None]
  - CARDIAC FAILURE CONGESTIVE [None]
  - CHEST X-RAY ABNORMAL [None]
  - HYPOXIA [None]
  - LUNG INFILTRATION [None]
